FAERS Safety Report 9034580 (Version 1)
Quarter: 2013Q1

REPORT INFORMATION
  Report Type: Spontaneous
  Country: IE (occurrence: IE)
  Receive Date: 20130128
  Receipt Date: 20130128
  Transmission Date: 20140127
  Serious: Yes (Hospitalization)
  Sender: FDA-Public Use
  Company Number: IE-ASTRAZENECA-2013SE05338

PATIENT
  Sex: Female

DRUGS (5)
  1. SYNAGIS [Suspect]
     Indication: HEART DISEASE CONGENITAL
     Route: 030
     Dates: start: 20121024
  2. ASPIRIN [Concomitant]
  3. ZOTON [Concomitant]
  4. FUROSEMIDE [Concomitant]
  5. CAPTOPRIL [Concomitant]

REACTIONS (1)
  - Kidney infection [Recovered/Resolved]
